FAERS Safety Report 8509417-7 (Version None)
Quarter: 2012Q3

REPORT INFORMATION
  Report Type: 
  Country: None (occurrence: None)
  Receive Date: 20120713
  Receipt Date: 20120702
  Transmission Date: 20120928
  Serious: Yes (Other)
  Sender: FDA-Public Use
  Company Number: US-PFIZER INC-2012154700

PATIENT
  Sex: Male
  Weight: 81.63 kg

DRUGS (4)
  1. COLLAGENASE CLOSTRIDIUM HISTOLYTICUM [Suspect]
     Indication: DUPUYTREN'S CONTRACTURE
     Dosage: 1 DF, 1X/DAY
     Route: 026
     Dates: start: 20120611, end: 20120611
  2. OMEPRAZOLE [Concomitant]
     Indication: GASTROOESOPHAGEAL REFLUX DISEASE
  3. LIDOCAINE HYDROCHLORIDE [Suspect]
     Dosage: UNK
     Dates: start: 20120612
  4. CIMETIDINE [Concomitant]
     Indication: GASTROOESOPHAGEAL REFLUX DISEASE

REACTIONS (4)
  - OEDEMA PERIPHERAL [None]
  - ECCHYMOSIS [None]
  - TENDON RUPTURE [None]
  - CONTUSION [None]
